FAERS Safety Report 4508559-0 (Version None)
Quarter: 2004Q4

REPORT INFORMATION
  Report Type: 
  Country: None (occurrence: None)
  Receive Date: 20041123
  Receipt Date: 20040331
  Transmission Date: 20050328
  Serious: No
  Sender: FDA-Public Use
  Company Number: 2004-01334

PATIENT
  Age: 60 Year
  Sex: Female
  Weight: 68.2 kg

DRUGS (2)
  1. WELLBUTRIN SR [Suspect]
     Indication: DEPRESSION
     Dosage: 100MG TWICE PER DAY
     Route: 048
     Dates: start: 20040205, end: 20040301
  2. ZOLOFT [Concomitant]
     Route: 065

REACTIONS (5)
  - ABDOMINAL DISTENSION [None]
  - FLATULENCE [None]
  - FREQUENT BOWEL MOVEMENTS [None]
  - HEADACHE [None]
  - NAUSEA [None]
